FAERS Safety Report 8828621 (Version 1)
Quarter: 2012Q4

REPORT INFORMATION
  Report Type: 
  Country: KH (occurrence: TH)
  Receive Date: 20121005
  Receipt Date: 20121005
  Transmission Date: 20130627
  Serious: Yes (Other)
  Sender: FDA-Public Use
  Company Number: KH-SANOFI-AVENTIS-2012SA073220

PATIENT
  Sex: Male

DRUGS (1)
  1. RILUTEK [Suspect]
     Indication: AMYOTROPHIC LATERAL SCLEROSIS
     Route: 065

REACTIONS (6)
  - Amyotrophic lateral sclerosis [Unknown]
  - Drug ineffective [Unknown]
  - Aphagia [Unknown]
  - Choking [Unknown]
  - Dyspnoea [Unknown]
  - Asthenia [Unknown]
